FAERS Safety Report 5326022-4 (Version None)
Quarter: 2007Q2

REPORT INFORMATION
  Report Type: 
  Country: None (occurrence: None)
  Receive Date: 20070514
  Receipt Date: 20070514
  Transmission Date: 20071010
  Serious: Yes (Disabling)
  Sender: FDA-Public Use
  Company Number: None

PATIENT
  Sex: Male
  Weight: 90.7194 kg

DRUGS (1)
  1. GADODIAMIDE/GE HEALTHCARE [Suspect]
     Indication: METASTATIC RENAL CELL CARCINOMA
     Dates: start: 20060101

REACTIONS (2)
  - FIBROSIS [None]
  - MUSCULOSKELETAL DISORDER [None]
